FAERS Safety Report 21882432 (Version 1)
Quarter: 2023Q1

REPORT INFORMATION
  Report Type: Other
  Country: US (occurrence: None)
  Receive Date: 20230119
  Receipt Date: 20230119
  Transmission Date: 20230417
  Serious: Yes (Other)
  Sender: FDA-Public Use
  Company Number: US-ROCHE-3266268

PATIENT
  Age: 69 Year
  Sex: Female

DRUGS (1)
  1. XELODA [Suspect]
     Active Substance: CAPECITABINE
     Indication: Breast cancer female
     Dosage: TAKE 2 TABLET(S) BY MOUTH (1000MG) TWICE A DAY 2 WEEK(S) ON, 1 WEEK(S) OFF
     Route: 048

REACTIONS (5)
  - Brain neoplasm [Unknown]
  - Pain in extremity [Unknown]
  - Skin discolouration [Unknown]
  - Melanocytic naevus [Unknown]
  - Photophobia [Unknown]
